FAERS Safety Report 8712740 (Version 5)
Quarter: 2012Q4

REPORT INFORMATION
  Report Type: Report from Study
  Country: FR (occurrence: FR)
  Receive Date: 20120808
  Receipt Date: 20120906
  Transmission Date: 20130627
  Serious: Yes (Hospitalization)
  Sender: FDA-Public Use
  Company Number: FR-MILLENNIUM PHARMACEUTICALS, INC.-2012-05337

PATIENT

DRUGS (7)
  1. VELCADE [Suspect]
     Indication: MANTLE CELL LYMPHOMA
     Dosage: 2.6 mg, UNK
     Route: 058
     Dates: start: 20120417, end: 20120716
  2. LEVACT [Suspect]
     Indication: MANTLE CELL LYMPHOMA
     Dosage: 180 mg, UNK
     Route: 042
     Dates: start: 20120417, end: 20120710
  3. MABTHERA [Suspect]
     Indication: MANTLE CELL LYMPHOMA
     Dosage: 750 mg, UNK
     Route: 042
     Dates: start: 20120417, end: 20120709
  4. LYRICA [Concomitant]
     Dosage: 25 mg, UNK
     Route: 048
     Dates: start: 20120709
  5. GLICLAZIDE [Concomitant]
     Dosage: 30 mg, UNK
     Route: 048
  6. PLAVIX                             /01220701/ [Concomitant]
     Dosage: 75 mg, UNK
     Route: 048
  7. ALPRESIN [Concomitant]
     Dosage: UNK
     Route: 048

REACTIONS (2)
  - Malocclusion [Recovered/Resolved]
  - Ileus [Recovered/Resolved]
